FAERS Safety Report 20594118 (Version 2)
Quarter: 2022Q2

REPORT INFORMATION
  Report Type: Report from Study
  Country: IN (occurrence: IN)
  Receive Date: 20220315
  Receipt Date: 20220504
  Transmission Date: 20220720
  Serious: Yes (Other)
  Sender: FDA-Public Use
  Company Number: IN-BRISTOL-MYERS SQUIBB COMPANY-BMS-2022-034819

PATIENT
  Age: 58 Year
  Sex: Female
  Weight: 69 kg

DRUGS (1)
  1. NIVOLUMAB [Suspect]
     Active Substance: NIVOLUMAB
     Indication: Squamous cell carcinoma of head and neck
     Dosage: 207 MILLIGRAM, Q2WK
     Route: 042
     Dates: start: 20211230

REACTIONS (7)
  - Pneumonia [Unknown]
  - Renal disorder [Unknown]
  - Weight fluctuation [Unknown]
  - Illness [Unknown]
  - Restlessness [Unknown]
  - Haemoglobin decreased [Unknown]
  - Diabetes mellitus [Unknown]
